FAERS Safety Report 22011309 (Version 5)
Quarter: 2023Q2

REPORT INFORMATION
  Report Type: Spontaneous
  Country: US (occurrence: US)
  Receive Date: 20230220
  Receipt Date: 20230418
  Transmission Date: 20230721
  Serious: Yes (Death, Other)
  Sender: FDA-Public Use
  Company Number: US-BIOVITRUM-2023US02552

PATIENT
  Sex: Male
  Weight: 4.30 kg

DRUGS (3)
  1. SYNAGIS [Suspect]
     Active Substance: PALIVIZUMAB
     Indication: Respiratory tract malformation
     Dosage: ONCE IN ONE MONTH
  2. SYNAGIS [Suspect]
     Active Substance: PALIVIZUMAB
     Indication: Congenital jaw malformation
     Route: 030
  3. SYNAGIS [Suspect]
     Active Substance: PALIVIZUMAB
     Indication: Foetal growth restriction

REACTIONS (4)
  - Death [Fatal]
  - Neurodegenerative disorder [Unknown]
  - Neonatal hypoxia [Unknown]
  - Oxygen saturation abnormal [Unknown]
